FAERS Safety Report 18322662 (Version 1)
Quarter: 2020Q3

REPORT INFORMATION
  Report Type: Spontaneous
  Country: US (occurrence: US)
  Receive Date: 20200928
  Receipt Date: 20200928
  Transmission Date: 20201103
  Serious: Yes (Hospitalization)
  Sender: FDA-Public Use
  Company Number: None

PATIENT
  Sex: Female

DRUGS (2)
  1. NONE LISTED [Concomitant]
  2. TALTZ [Suspect]
     Active Substance: IXEKIZUMAB

REACTIONS (2)
  - Cerebrovascular accident [None]
  - Thrombosis [None]
